FAERS Safety Report 8988750 (Version 1)
Quarter: 2012Q4

REPORT INFORMATION
  Report Type: 
  Country: JP (occurrence: JP)
  Receive Date: 20121228
  Receipt Date: 20121228
  Transmission Date: 20130627
  Serious: Yes (Death, Hospitalization)
  Sender: FDA-Public Use
  Company Number: JP-SANOFI-AVENTIS-200910118JP

PATIENT
  Age: 72 Year
  Sex: Male
  Weight: 59.1 kg

DRUGS (10)
  1. ENDOXAN [Suspect]
     Indication: PROSTATE CANCER
     Route: 065
     Dates: start: 20080530
  2. ENDOXAN [Suspect]
     Indication: PROSTATE CANCER
     Route: 065
     Dates: start: 20080630, end: 20080728
  3. TAXOTERE [Suspect]
     Indication: PROSTATE CANCER
     Dosage: 60 mg/m2
     Route: 041
     Dates: start: 20081006, end: 20081006
  4. TAXOTERE [Suspect]
     Indication: PROSTATE CANCER
     Dosage: 60 mg/m2
     Route: 041
     Dates: start: 20081031, end: 20081031
  5. TAXOTERE [Suspect]
     Indication: PROSTATE CANCER
     Dosage: 60 mg/m2
     Route: 041
     Dates: start: 20081127, end: 20081127
  6. TAXOTERE [Suspect]
     Indication: PROSTATE CANCER
     Dosage: 60 mg/m2
     Route: 041
     Dates: start: 20081218, end: 20081218
  7. TEGAFUR\URACIL [Suspect]
     Indication: PROSTATE CANCER
     Route: 065
     Dates: start: 20080530
  8. TEGAFUR\URACIL [Suspect]
     Indication: PROSTATE CANCER
     Route: 065
     Dates: start: 20080630, end: 20090106
  9. PREDNISOLONE [Concomitant]
     Indication: PROSTATE CARCINOMA
     Route: 048
     Dates: start: 20081007, end: 20081218
  10. ESTRACYT [Concomitant]
     Indication: PROSTATE CARCINOMA
     Dates: start: 20070726, end: 20080929

REACTIONS (3)
  - Interstitial lung disease [Fatal]
  - Dyspnoea exertional [Fatal]
  - Respiratory failure [Fatal]
